FAERS Safety Report 5291333-8 (Version None)
Quarter: 2007Q2

REPORT INFORMATION
  Report Type: 
  Country: None (occurrence: None)
  Receive Date: 20070403
  Receipt Date: 20070323
  Transmission Date: 20071010
  Serious: Yes (Death, Other)
  Sender: FDA-Public Use
  Company Number: 2007JP001054

PATIENT
  Age: 58 Year
  Sex: Male

DRUGS (8)
  1. PROGRAF [Suspect]
     Indication: LIVER TRANSPLANT
  2. RITUXIMAB(RITUXIMAB) FORMULATION UNKNOWN [Suspect]
     Dosage: 375 MG/M2/D
  3. METHYLPREDNISOLONE [Concomitant]
  4. PREDNISOLONE [Concomitant]
  5. MYCOPHENOLATE MOFETIL [Concomitant]
  6. METHYLPREDNISOLONE [Concomitant]
  7. PROSTAGLANDIN E1 (ALPROSTADIL) [Concomitant]
  8. HEPARIN [Concomitant]

REACTIONS (8)
  - ABDOMINAL ABSCESS [None]
  - BLOOD IMMUNOGLOBULIN G DECREASED [None]
  - BONE MARROW FAILURE [None]
  - HYPOGAMMAGLOBULINAEMIA [None]
  - PNEUMOCYSTIS JIROVECI PNEUMONIA [None]
  - PNEUMONIA CYTOMEGALOVIRAL [None]
  - SEPSIS [None]
  - TRANSPLANT REJECTION [None]
